FAERS Safety Report 7719719-X (Version None)
Quarter: 2011Q3

REPORT INFORMATION
  Report Type: 
  Country: None (occurrence: None)
  Receive Date: 20110830
  Receipt Date: 20110823
  Transmission Date: 20111222
  Serious: Yes (Other)
  Sender: FDA-Public Use
  Company Number: US-MYLANLABS-2011S1015215

PATIENT
  Age: 24 Year
  Sex: Female

DRUGS (2)
  1. AMNESTEEM [Suspect]
     Dates: end: 20110610
  2. AMNESTEEM [Suspect]
     Dates: start: 20110118

REACTIONS (2)
  - MATERNAL EXPOSURE DURING PREGNANCY [None]
  - MALAISE [None]
